FAERS Safety Report 25657179 (Version 1)
Quarter: 2025Q3

REPORT INFORMATION
  Report Type: Report from Study
  Country: ZA (occurrence: ZA)
  Receive Date: 20250808
  Receipt Date: 20250808
  Transmission Date: 20251020
  Serious: Yes (Death, Hospitalization)
  Sender: ABBVIE
  Company Number: ZA-ABBOTT-2024A-1381347

PATIENT
  Age: 76 Year
  Sex: Male

DRUGS (56)
  1. FENOFIBRATE [Suspect]
     Active Substance: FENOFIBRATE
     Indication: Product used for unknown indication
     Dosage: 200 MG TAKE ONE TABLET ONCE DAILY
     Route: 048
  2. LOPERAMIDE [Concomitant]
     Active Substance: LOPERAMIDE
     Indication: Product used for unknown indication
  3. PERINDOPRIL [Concomitant]
     Active Substance: PERINDOPRIL
     Indication: Hypertension
     Dosage: 10 MG TAKE ONE TABLET DAILY
     Route: 048
  4. MAGNESIUM CHLORIDE [Concomitant]
     Active Substance: MAGNESIUM CHLORIDE
     Indication: Product used for unknown indication
  5. MOXONIDINE [Suspect]
     Active Substance: MOXONIDINE
     Indication: Hypertension
     Dosage: 0.4 MG DIRECTIONS TAKE ONE TABLET DAILY
     Route: 048
  6. MOXONIDINE [Suspect]
     Active Substance: MOXONIDINE
     Indication: Hypertension
     Dosage: 0.2 MG TAKE TWO TABLETS DAILY
     Route: 048
  7. NEUROBION [Concomitant]
     Active Substance: CYANOCOBALAMIN\PYRIDOXINE\THIAMINE
     Indication: Product used for unknown indication
     Route: 048
  8. CLOPIDOGREL BISULFATE [Concomitant]
     Active Substance: CLOPIDOGREL BISULFATE
     Indication: Thrombosis prophylaxis
     Dosage: 75 MG DIRECTIONS TAKE ONE TABLET DAILY
     Route: 048
  9. ESOMEPRAZOLE MAGNESIUM [Concomitant]
     Active Substance: ESOMEPRAZOLE MAGNESIUM
     Indication: Gastrooesophageal reflux disease
     Dosage: 40 MG TAKE ONE TABLET TWICE A DAY
     Route: 048
  10. FLUTICASONE PROPIONATE [Concomitant]
     Active Substance: FLUTICASONE PROPIONATE
     Indication: Hypersensitivity
  11. DAPAGLIFLOZIN PROPANEDIOL [Concomitant]
     Active Substance: DAPAGLIFLOZIN PROPANEDIOL
     Indication: Type 2 diabetes mellitus
     Dosage: 10 MG DIRECTIONS TAKE ONE TABLET DAILY
     Route: 048
  12. POTASSIUM CHLORIDE [Concomitant]
     Active Substance: POTASSIUM CHLORIDE
     Indication: Hypokalaemia
     Dosage: 600 MG DIRECTIONS TAKE ONE TABLET DAILY?PLENISH-K SR
     Route: 048
  13. DILTIAZEM HYDROCHLORIDE [Concomitant]
     Active Substance: DILTIAZEM HYDROCHLORIDE
     Indication: Cardiac disorder
     Dosage: 180 MG DIRECTIONS TAKE ONE TABLET DAILY
     Route: 048
  14. METHYLDOPA [Concomitant]
     Active Substance: METHYLDOPA
     Indication: Hypertension
     Dosage: 250 MG TAKE ONE TABLET DAILY
     Route: 048
  15. Ciplactin [Concomitant]
     Indication: Product used for unknown indication
     Dosage: 4 MG DIRECTIONS TAKE ONE TABLET DAILY
     Route: 048
  16. GLUCOPHAGE XR [Concomitant]
     Active Substance: METFORMIN HYDROCHLORIDE
     Indication: Type 2 diabetes mellitus
     Dosage: 1000 MG DIRECTIONS TAKE ONE TABLET DAILY
     Route: 048
  17. COLCHICINE [Concomitant]
     Active Substance: COLCHICINE
     Indication: Product used for unknown indication
     Dosage: 1 MG DIRECTIONS TAKE HALF TABLET THREE TIMES DAILY
     Route: 048
  18. PANTOPRAZOLE SODIUM [Concomitant]
     Active Substance: PANTOPRAZOLE SODIUM
     Indication: Ulcer
     Dosage: 40 MG DIRECTIONS TAKE ONE TABLET DAILY
     Route: 048
  19. Codeine phos kent [Concomitant]
     Indication: Product used for unknown indication
     Dosage: 30 MG TAKE ONE TABLET AT NIGHT
     Route: 048
  20. POTASSIUM CHLORIDE [Concomitant]
     Active Substance: POTASSIUM CHLORIDE
     Indication: Gout
     Dosage: 300 MG DIRECTIONS TAKE ONE TABLET DAILY, PLENISH-K SR
     Route: 048
  21. AMIODARONE [Concomitant]
     Active Substance: AMIODARONE
     Indication: Arrhythmia
     Dosage: 200 MG TAKE ONE TABLET TWICE A DAY
     Route: 048
  22. Gen payne [Concomitant]
     Indication: Product used for unknown indication
     Route: 048
  23. Amloc [Concomitant]
     Indication: Hypertension
     Dosage: 10 MG TAKE ONE TABLET DAILY
     Route: 048
  24. METFORMIN HYDROCHLORIDE [Concomitant]
     Active Substance: METFORMIN HYDROCHLORIDE
     Indication: Type 2 diabetes mellitus
     Dosage: 500 MG DIRECTIONS TAKE ONE TABLET DAILY
     Route: 048
  25. METFORMIN HYDROCHLORIDE [Concomitant]
     Active Substance: METFORMIN HYDROCHLORIDE
     Indication: Type 2 diabetes mellitus
     Dosage: 1000 MG DIRECTIONS TAKE ONE TABLET DAILY
     Route: 048
  26. MOVIPREP [Concomitant]
     Active Substance: ASCORBIC ACID\POLYETHYLENE GLYCOL 3350\POTASSIUM CHLORIDE\SODIUM ASCORBATE\SODIUM CHLORIDE\SODIUM SU
     Indication: Laxative supportive care
  27. PREGABALIN [Concomitant]
     Active Substance: PREGABALIN
     Indication: Epilepsy
     Dosage: 75 MG DIRECTIONS TAKE ONE TABLET TWICE DAILY
     Route: 048
  28. FUROSEMIDE [Concomitant]
     Active Substance: FUROSEMIDE
     Indication: Hypertension
     Dosage: 40 MG DIRECTIONS TAKE ONE TABLET IN THE MORNING
     Route: 048
  29. FUROSEMIDE [Concomitant]
     Active Substance: FUROSEMIDE
     Indication: Hypertension
     Dosage: 40 MG TAKE TWO TABLETS THREE TIMES A DAY
     Route: 048
  30. ECOTRIN [Concomitant]
     Active Substance: ASPIRIN
     Indication: Thrombosis prophylaxis
     Dosage: 81 MG DIRECTIONS TAKE ONE DAILY
     Route: 048
  31. FENOFIBRATE\PRAVASTATIN [Concomitant]
     Active Substance: FENOFIBRATE\PRAVASTATIN
     Indication: Hyperlipidaemia
     Dosage: 40/160 MG DIRECTIONS TAKE ONE TABLET DAILY
     Route: 048
  32. IVABRADINE HYDROCHLORIDE [Concomitant]
     Active Substance: IVABRADINE HYDROCHLORIDE
     Indication: Angina pectoris
     Dosage: 5 MG DIRECTIONS TAKE ONE TABLET TWICE DAILY
     Route: 048
  33. Trobet [Concomitant]
     Indication: Hypertension
     Dosage: 300 MG DIRECTIONS TAKE ONE TABLET DAILY
     Route: 048
  34. Trobet [Concomitant]
     Indication: Hypertension
     Dosage: 150 MG DIRECTIONS TAKE ONE TABLET DAILY
     Route: 048
  35. ALPRAZOLAM [Concomitant]
     Active Substance: ALPRAZOLAM
     Indication: Anxiety
     Dosage: 0.25 MG DIRECTIONS TAKE ONE TABLET DAILY
     Route: 048
  36. INFLUVAC [Suspect]
     Active Substance: INFLUENZA VIRUS VACCINE TRIVALENT TYPE A+B
     Indication: Product used for unknown indication
     Route: 065
  37. LONITEN [Concomitant]
     Active Substance: MINOXIDIL
     Indication: Hypertension
     Dosage: 5 MG TAKE HALF A TABLET DAILY
     Route: 048
  38. CARVEDILOL [Concomitant]
     Active Substance: CARVEDILOL
     Indication: Hypertension
     Dosage: 25 MG TAKE ONE TABLET TWICE A DAY
     Route: 048
  39. ONDANSETRON HYDROCHLORIDE [Concomitant]
     Active Substance: ONDANSETRON HYDROCHLORIDE
     Indication: Nausea
     Route: 048
  40. EPREX [Concomitant]
     Active Substance: ERYTHROPOIETIN
     Indication: Anaemia
     Route: 058
  41. Sandoz co amoxyclav [Concomitant]
     Indication: Product used for unknown indication
     Dosage: 375 MG TAKE ONETABLET THREE TIMES A ?DAY
     Route: 048
  42. MONTELUKAST SODIUM [Concomitant]
     Active Substance: MONTELUKAST SODIUM
     Indication: Asthma
     Dosage: 10 MG TAKE ONE TABLET DAILY
     Route: 048
  43. FLUTICASONE FUROATE [Concomitant]
     Active Substance: FLUTICASONE FUROATE
     Indication: Hypersensitivity
     Route: 045
  44. GUAIFENESIN [Concomitant]
     Active Substance: GUAIFENESIN
     Indication: Product used for unknown indication
     Route: 048
  45. Budair [Concomitant]
     Indication: Rhinitis allergic
     Route: 055
  46. Synaleve [Concomitant]
     Indication: Pain
     Dosage: TAKE TWO CAPSULES ORALLY TWICE A DAY
     Route: 048
  47. POTASSIUM CHLORIDE [Concomitant]
     Active Substance: POTASSIUM CHLORIDE
     Indication: Hypokalaemia
     Dosage: 600 MG TAKE TWO TABLETS DAILY
     Route: 048
  48. POTASSIUM CHLORIDE [Concomitant]
     Active Substance: POTASSIUM CHLORIDE
     Indication: Hypokalaemia
     Dosage: 600 MG DIRECTIONS TAKE ONE TABLET DAILY
     Route: 048
  49. Samjin Hydralazine HCl [Concomitant]
     Indication: Hypertension
     Route: 048
  50. Felodipine eg [Concomitant]
     Indication: Hypertension
     Dosage: 10 MG TAKE ONE TABLET DAILY
     Route: 048
  51. LEVALBUTEROL HYDROCHLORIDE [Concomitant]
     Active Substance: LEVALBUTEROL HYDROCHLORIDE
     Indication: Asthma
     Route: 055
  52. MORPHINE SULFATE [Concomitant]
     Active Substance: MORPHINE SULFATE
     Indication: Pain
     Route: 048
  53. Allergex [Concomitant]
     Indication: Hypersensitivity
     Dosage: 4 MG TAKE ONE TABLET AT NIGHT
     Route: 048
  54. FLURBIPROFEN [Concomitant]
     Active Substance: FLURBIPROFEN
     Indication: Product used for unknown indication
     Route: 061
  55. AZITHROMYCIN [Concomitant]
     Active Substance: AZITHROMYCIN
     Indication: Product used for unknown indication
     Dosage: 500 MG TAKE ONETABLET DAILY
     Route: 048
  56. ProbiFlora Rx Intestinal Flora Care [Concomitant]
     Indication: Product used for unknown indication
     Dosage: TAKE ONE CAPSULE TWICE A DAY
     Route: 048

REACTIONS (3)
  - Neoplasm malignant [Fatal]
  - Hospitalisation [Unknown]
  - Renal failure [Fatal]
